FAERS Safety Report 7584797-8 (Version None)
Quarter: 2011Q2

REPORT INFORMATION
  Report Type: 
  Country: None (occurrence: None)
  Receive Date: 20110630
  Receipt Date: 20110617
  Transmission Date: 20111010
  Serious: Yes (Other)
  Sender: FDA-Public Use
  Company Number: PHHY2011BR55423

PATIENT
  Sex: Female

DRUGS (2)
  1. ANGIPRESS [Concomitant]
     Dosage: 50/12.5MG
  2. DIOVAN [Suspect]
     Dosage: 320 MG, UNK

REACTIONS (2)
  - KNEE ARTHROPLASTY [None]
  - SPINAL CORD DISORDER [None]
